FAERS Safety Report 16942678 (Version 3)
Quarter: 2019Q4

REPORT INFORMATION
  Report Type: Spontaneous
  Country: CA (occurrence: CA)
  Receive Date: 20191021
  Receipt Date: 20191120
  Transmission Date: 20200122
  Serious: Yes (Hospitalization)
  Sender: FDA-Public Use
  Company Number: CA-ACTELION-A-NJ2019-197026

PATIENT
  Age: 64 Year
  Sex: Female
  Weight: 54.42 kg

DRUGS (8)
  1. AMLODIPINE [Concomitant]
     Active Substance: AMLODIPINE BESYLATE
  2. ROSUVASTATIN. [Concomitant]
     Active Substance: ROSUVASTATIN
  3. CARIPUL [Suspect]
     Active Substance: EPOPROSTENOL
     Indication: PULMONARY ARTERIAL HYPERTENSION
     Dosage: 15000 NG
     Route: 042
     Dates: start: 20191007
  4. TRACLEER [Suspect]
     Active Substance: BOSENTAN
     Indication: PULMONARY ARTERIAL HYPERTENSION
     Dosage: 62.5 MG
     Route: 048
     Dates: start: 20190921
  5. FUROSEMIDE. [Concomitant]
     Active Substance: FUROSEMIDE
  6. CARIPUL [Suspect]
     Active Substance: EPOPROSTENOL
     Dosage: 3000 NG
     Route: 042
  7. WARFARIN [Concomitant]
     Active Substance: WARFARIN
  8. TRACLEER [Suspect]
     Active Substance: BOSENTAN
     Dosage: 125 MCG, BID
     Route: 048

REACTIONS (2)
  - Hospitalisation [Unknown]
  - Surgery [Unknown]

NARRATIVE: CASE EVENT DATE: 20191028
